FAERS Safety Report 8814047 (Version 1)
Quarter: 2012Q4

REPORT INFORMATION
  Report Type: Spontaneous
  Country: FR (occurrence: None)
  Receive Date: 20120925
  Receipt Date: 20120925
  Transmission Date: 20130627
  Serious: Yes (Hospitalization)
  Sender: FDA-Public Use
  Company Number: 7159890

PATIENT
  Age: 58 Year
  Sex: Female

DRUGS (6)
  1. LEVOTHYROX [Suspect]
     Dosage: 1 df (1 df, 1 in 1 d)
     Route: 048
  2. METFORMIN [Suspect]
     Dosage: 3000 mg (1000 mg, 3 in 1 d)
     Route: 048
  3. DIAMICRON [Suspect]
     Dosage: 3 df (1 df, 3 in 1 d)
     Route: 048
  4. TAHOR [Suspect]
     Dosage: 1 df (1 df, 1 in 1 d)
     Route: 048
  5. TRIATEC [Suspect]
     Dosage: 1 df (1 df, 1 in 1 d)
     Route: 048
  6. JANUVIA [Concomitant]
     Route: 048

REACTIONS (1)
  - Pancreatitis acute [None]
